FAERS Safety Report 14713583 (Version 1)
Quarter: 2018Q1

REPORT INFORMATION
  Report Type: Spontaneous
  Country: US (occurrence: US)
  Receive Date: 20180330
  Receipt Date: 20180330
  Transmission Date: 20180509
  Serious: Yes (Hospitalization)
  Sender: FDA-Public Use
  Company Number: None

PATIENT
  Age: 84 Year
  Sex: Male

DRUGS (8)
  1. ESBRIET [Suspect]
     Active Substance: PIRFENIDONE
     Indication: IDIOPATHIC PULMONARY FIBROSIS
     Dosage: D1-7 1TAB D8-14 2 TAB D15-30 3 TAB
     Route: 048
     Dates: end: 201803
  2. METHYLPRED [Concomitant]
     Active Substance: METHYLPREDNISOLONE
  3. DOXYCYCL [Concomitant]
  4. FUROSEMIDE. [Concomitant]
     Active Substance: FUROSEMIDE
  5. ATORVASTATIN [Concomitant]
     Active Substance: ATORVASTATIN
  6. OMEPRAZOLE. [Concomitant]
     Active Substance: OMEPRAZOLE
  7. ONDANSETRON [Concomitant]
     Active Substance: ONDANSETRON
  8. BENZONATATE. [Concomitant]
     Active Substance: BENZONATATE

REACTIONS (1)
  - Cardiac disorder [None]

NARRATIVE: CASE EVENT DATE: 20180327
